FAERS Safety Report 11765435 (Version 1)
Quarter: 2015Q4

REPORT INFORMATION
  Report Type: Spontaneous
  Country: US (occurrence: US)
  Receive Date: 20151120
  Receipt Date: 20151120
  Transmission Date: 20160304
  Serious: No
  Sender: FDA-Public Use
  Company Number: US-ELI_LILLY_AND_COMPANY-US201402001693

PATIENT
  Age: 63 Year
  Sex: Female
  Weight: 79.82 kg

DRUGS (13)
  1. FORTEO [Suspect]
     Active Substance: TERIPARATIDE
     Indication: OSTEOPOROSIS
     Dosage: 20 UG, QD
     Route: 058
     Dates: start: 201311, end: 201312
  2. FORTEO [Suspect]
     Active Substance: TERIPARATIDE
     Dosage: 20 UG, QD
     Route: 058
     Dates: start: 20140116
  3. MOTRIN [Concomitant]
     Active Substance: IBUPROFEN
     Indication: PAIN
     Dosage: 600 MG, EVERY 6 HRS
     Route: 048
  4. ANTIVERT                           /00007101/ [Concomitant]
     Indication: DIZZINESS
     Dosage: 25 MG, TID
     Route: 048
  5. SYNTHROID [Concomitant]
     Active Substance: LEVOTHYROXINE SODIUM
     Indication: DIZZINESS
     Dosage: 137 UG, QD
     Route: 048
  6. DILANTIN [Concomitant]
     Active Substance: PHENYTOIN
     Dosage: 200 MG, QD
  7. LUMINAL                            /00023201/ [Concomitant]
     Active Substance: PHENOBARBITAL SODIUM
     Dosage: 60 MG, EACH MORNING
  8. FLEXERIL [Concomitant]
     Active Substance: CYCLOBENZAPRINE HYDROCHLORIDE
     Dosage: 5 MG, TID
     Route: 048
  9. BOTOX [Concomitant]
     Active Substance: ONABOTULINUMTOXINA
     Dosage: 100 U, OTHER
     Route: 030
  10. DILANTIN [Concomitant]
     Active Substance: PHENYTOIN
     Dosage: 100 MG, EACH MORNING
  11. NORCO [Concomitant]
     Active Substance: ACETAMINOPHEN\HYDROCODONE BITARTRATE
     Dosage: UNK, PRN
     Route: 048
  12. LASIX [Concomitant]
     Active Substance: FUROSEMIDE
     Indication: DIZZINESS
     Dosage: 20 MG, QD
     Route: 048
  13. LUMINAL                            /00023201/ [Concomitant]
     Active Substance: PHENOBARBITAL SODIUM
     Dosage: 60 MG, QD

REACTIONS (4)
  - Hypermetropia [Unknown]
  - Cutis laxa [Unknown]
  - Vitreous detachment [Unknown]
  - Cataract [Unknown]

NARRATIVE: CASE EVENT DATE: 20140107
